FAERS Safety Report 25341076 (Version 1)
Quarter: 2025Q2

REPORT INFORMATION
  Report Type: Spontaneous
  Country: EG (occurrence: EG)
  Receive Date: 20250521
  Receipt Date: 20250521
  Transmission Date: 20250716
  Serious: Yes (Other)
  Sender: HIKMA
  Company Number: EG-HIKMA PHARMACEUTICALS-EG-H14001-25-04462

PATIENT
  Age: 66 Year
  Sex: Female
  Weight: 90 kg

DRUGS (2)
  1. DOXORUBICIN [Suspect]
     Active Substance: DOXORUBICIN
     Indication: Breast cancer
     Dosage: 114 MILLIGRAM, 3W
     Route: 042
  2. CYCLOPHOSPHAMIDE [Suspect]
     Active Substance: CYCLOPHOSPHAMIDE
     Indication: Breast cancer
     Dosage: 1140 MILLIGRAM, 3W
     Route: 042

REACTIONS (1)
  - Normochromic normocytic anaemia [Recovered/Resolved]

NARRATIVE: CASE EVENT DATE: 20250419
